FAERS Safety Report 17817738 (Version 1)
Quarter: 2020Q2

REPORT INFORMATION
  Report Type: Spontaneous
  Country: FR (occurrence: FR)
  Receive Date: 20200522
  Receipt Date: 20200522
  Transmission Date: 20200714
  Serious: Yes (Hospitalization)
  Sender: FDA-Public Use
  Company Number: FR-MYLANLABS-2020M1050289

PATIENT
  Age: 78 Year
  Sex: Male
  Weight: 70.3 kg

DRUGS (3)
  1. ACICLOVIR [Suspect]
     Active Substance: ACYCLOVIR
     Indication: LIP DISORDER
     Dosage: NON PR?CIS?
     Route: 003
     Dates: start: 20191004
  2. BIPROFENID [Suspect]
     Active Substance: KETOPROFEN
     Indication: OEDEMA PERIPHERAL
     Dosage: NON PR?CIS?
     Route: 048
     Dates: start: 20190805
  3. LANSOPRAZOLE. [Suspect]
     Active Substance: LANSOPRAZOLE
     Indication: PRODUCT USED FOR UNKNOWN INDICATION
     Dosage: 15 MILLIGRAM, QD
     Route: 048
     Dates: start: 20190805

REACTIONS (3)
  - Rash erythematous [Recovered/Resolved]
  - Dermatitis bullous [Recovered/Resolved]
  - Mucosal ulceration [Recovered/Resolved]

NARRATIVE: CASE EVENT DATE: 201910
